FAERS Safety Report 6347575-3 (Version None)
Quarter: 2009Q3

REPORT INFORMATION
  Report Type: 
  Country: None (occurrence: None)
  Receive Date: 20090909
  Receipt Date: 20090909
  Transmission Date: 20100115
  Serious: Yes (Hospitalization, Other)
  Sender: FDA-Public Use
  Company Number: None

PATIENT
  Sex: Male

DRUGS (1)
  1. OXCARBAZEPINE [Suspect]

REACTIONS (3)
  - CONVULSION [None]
  - GRAND MAL CONVULSION [None]
  - PRODUCT SUBSTITUTION ISSUE [None]
